FAERS Safety Report 4273991-X (Version None)
Quarter: 2004Q1

REPORT INFORMATION
  Report Type: 
  Country: None (occurrence: None)
  Receive Date: 20040115
  Receipt Date: 20040105
  Transmission Date: 20041129
  Serious: Yes (Hospitalization)
  Sender: FDA-Public Use
  Company Number: 138048USA

PATIENT
  Age: 80 Year
  Sex: Female
  Weight: 74.8435 kg

DRUGS (4)
  1. LEVODOPA-CARBIDOPA [Suspect]
     Indication: PARKINSON'S DISEASE
     Dates: start: 20020101, end: 20031229
  2. TENORMIN [Concomitant]
  3. VALIUM [Concomitant]
  4. ACCUPRIL [Concomitant]

REACTIONS (3)
  - ANAL DISCOMFORT [None]
  - COLONIC POLYP [None]
  - RECTAL HAEMORRHAGE [None]
